FAERS Safety Report 5325777-2 (Version None)
Quarter: 2007Q2

REPORT INFORMATION
  Report Type: 
  Country: None (occurrence: None)
  Receive Date: 20070510
  Receipt Date: 20070504
  Transmission Date: 20071010
  Serious: Yes (Death)
  Sender: FDA-Public Use
  Company Number: E2020-01208-SPO-GB

PATIENT
  Age: 77 Year
  Weight: 70 kg

DRUGS (8)
  1. ARICEPT [Suspect]
     Indication: MEMORY IMPAIRMENT
     Dosage: 5 MG, 1 IN 1 D; ORAL
     Route: 048
     Dates: start: 20070312
  2. ASPIRIN [Concomitant]
  3. ATORVASTATIN CALCIUM [Concomitant]
  4. GTN (GLYCERYL TRINITRATE) [Concomitant]
  5. ISOSORBIDE MONONITRATE [Concomitant]
  6. LERCANIDIPINE [Concomitant]
  7. METOPROLOL TARTRATE [Concomitant]
  8. TRIMIPRAMINE MALEATE [Concomitant]

REACTIONS (1)
  - SUDDEN DEATH [None]
